APPROVED DRUG PRODUCT: CASODEX
Active Ingredient: BICALUTAMIDE
Strength: 50MG
Dosage Form/Route: TABLET;ORAL
Application: N020498 | Product #001 | TE Code: AB
Applicant: ANI PHARMACEUTICALS INC
Approved: Oct 4, 1995 | RLD: Yes | RS: Yes | Type: RX